FAERS Safety Report 11315431 (Version 1)
Quarter: 2015Q3

REPORT INFORMATION
  Report Type: Spontaneous
  Country: SK (occurrence: SK)
  Receive Date: 20150728
  Receipt Date: 20150728
  Transmission Date: 20151125
  Serious: Yes (Death)
  Sender: FDA-Public Use
  Company Number: SK-ABBVIE-15K-260-1433002-00

PATIENT
  Age: 67 Year
  Sex: Female

DRUGS (3)
  1. SALOFALK [Concomitant]
     Active Substance: MESALAMINE
     Indication: CROHN^S DISEASE
     Dates: start: 2011, end: 20150511
  2. HUMIRA [Suspect]
     Active Substance: ADALIMUMAB
     Indication: RHEUMATOID ARTHRITIS
     Route: 058
     Dates: start: 20130606, end: 20150511
  3. METHOTREXATE [Concomitant]
     Active Substance: METHOTREXATE
     Indication: RHEUMATOID ARTHRITIS
     Route: 048
     Dates: start: 20130606, end: 20150511

REACTIONS (4)
  - Sepsis [Fatal]
  - Metastases to lung [Fatal]
  - Adenocarcinoma pancreas [Fatal]
  - Metastases to liver [Fatal]

NARRATIVE: CASE EVENT DATE: 20150505
